FAERS Safety Report 7183510-6 (Version None)
Quarter: 2010Q4

REPORT INFORMATION
  Report Type: 
  Country: None (occurrence: None)
  Receive Date: 20101222
  Receipt Date: 20101210
  Transmission Date: 20110411
  Serious: Yes (Hospitalization)
  Sender: FDA-Public Use
  Company Number: PHFR2010GB05267

PATIENT
  Sex: Female

DRUGS (7)
  1. CLOZARIL [Suspect]
     Indication: SCHIZOPHRENIA
     Dosage: 350 MG / DAY
     Route: 048
     Dates: start: 20100825
  2. BISOPROLOL [Concomitant]
     Dosage: 2.5 MG, UNK
     Route: 048
  3. ASPIRIN [Concomitant]
     Dosage: 7.5 MG, UNK
  4. VENTOLIN [Concomitant]
  5. BUDESONIDE [Concomitant]
  6. FORMOTEROL FUMARATE [Concomitant]
     Dosage: 1 PUFF TWICE A DAY
  7. OMEPRAZOLE [Concomitant]
     Dosage: 20 MG, QD
     Route: 048

REACTIONS (4)
  - ABDOMINAL PAIN UPPER [None]
  - CHOLELITHIASIS [None]
  - GALLBLADDER OPERATION [None]
  - MALAISE [None]
